FAERS Safety Report 18845200 (Version 1)
Quarter: 2021Q1

REPORT INFORMATION
  Report Type: Report from Study
  Country: CA (occurrence: CA)
  Receive Date: 20210203
  Receipt Date: 20210203
  Transmission Date: 20210419
  Serious: No
  Sender: FDA-Public Use
  Company Number: CA-EXELIXIS-CABO-20030173

PATIENT
  Age: 73 Year
  Sex: Male

DRUGS (1)
  1. CABOMETYX [Suspect]
     Active Substance: CABOZANTINIB S-MALATE
     Indication: GASTROINTESTINAL STROMAL TUMOUR
     Dosage: UNK
     Route: 048
     Dates: end: 20200722

REACTIONS (6)
  - Asthenia [Unknown]
  - Anhedonia [Unknown]
  - General physical health deterioration [Unknown]
  - Decreased appetite [Unknown]
  - Off label use [Unknown]
  - Angina pectoris [Recovering/Resolving]

NARRATIVE: CASE EVENT DATE: 20200414
